FAERS Safety Report 15969397 (Version 1)
Quarter: 2019Q1

REPORT INFORMATION
  Report Type: Spontaneous
  Country: FR (occurrence: FR)
  Receive Date: 20190215
  Receipt Date: 20190215
  Transmission Date: 20190418
  Serious: Yes (Hospitalization, Other)
  Sender: FDA-Public Use
  Company Number: FR-TEVA-2019-FR-1010747

PATIENT
  Age: 70 Year
  Sex: Male
  Weight: 85 kg

DRUGS (8)
  1. LEVOTHYROX 25 MICROGRAMMES, COMPRIM? S?CABLE [Concomitant]
     Active Substance: LEVOTHYROXINE SODIUM
  2. ZOPICLONE [Concomitant]
     Active Substance: ZOPICLONE
  3. INDAPAMIDE. [Suspect]
     Active Substance: INDAPAMIDE
     Route: 065
  4. NORSET 15 MG, COMPRIM? PELLICUL? [Suspect]
     Active Substance: MIRTAZAPINE
     Dosage: 15 MILLIGRAM DAILY;
     Route: 048
     Dates: end: 20180904
  5. TERALITHE [Interacting]
     Active Substance: LITHIUM CARBONATE
     Indication: BIPOLAR DISORDER
     Route: 048
     Dates: end: 20180904
  6. OXAZEPAM. [Concomitant]
     Active Substance: OXAZEPAM
  7. LARGACTIL [Suspect]
     Active Substance: CHLORPROMAZINE
     Dosage: 21 MILLIGRAM DAILY;
     Route: 048
     Dates: end: 20180904
  8. COVERAM [Interacting]
     Active Substance: AMLODIPINE\PERINDOPRIL
     Indication: HYPERTENSION
     Route: 048
     Dates: end: 20180904

REACTIONS (5)
  - Drug interaction [Unknown]
  - Toxic encephalopathy [Recovered/Resolved]
  - Acute kidney injury [Recovered/Resolved]
  - Confusional state [Recovered/Resolved]
  - Bladder dilatation [Recovered/Resolved]

NARRATIVE: CASE EVENT DATE: 20180904
